FAERS Safety Report 20850895 (Version 1)
Quarter: 2022Q2

REPORT INFORMATION
  Report Type: Spontaneous
  Country: US (occurrence: US)
  Receive Date: 20220519
  Receipt Date: 20220519
  Transmission Date: 20220721
  Serious: No
  Sender: FDA-Public Use
  Company Number: US-PFIZER INC-202200317319

PATIENT
  Age: 79 Year
  Sex: Male
  Weight: 100.7 kg

DRUGS (2)
  1. MILRINONE [Suspect]
     Active Substance: MILRINONE
     Dosage: UNK, DAILY
     Dates: end: 20211008
  2. MILRINONE [Suspect]
     Active Substance: MILRINONE
     Dosage: UNK, DAILY
     Dates: end: 20220127

REACTIONS (2)
  - Nausea [Recovered/Resolved]
  - Illness [Unknown]

NARRATIVE: CASE EVENT DATE: 20211005
